FAERS Safety Report 26098442 (Version 1)
Quarter: 2025Q4

REPORT INFORMATION
  Report Type: Spontaneous
  Country: EU (occurrence: EU)
  Receive Date: 20251127
  Receipt Date: 20251127
  Transmission Date: 20260118
  Serious: Yes (Other)
  Sender: PFIZER
  Company Number: EU-PFIZER INC-PV202500139525

PATIENT
  Age: 25 Year
  Sex: Male
  Weight: 70 kg

DRUGS (1)
  1. INFLIXIMAB [Suspect]
     Active Substance: INFLIXIMAB
     Indication: Crohn^s disease
     Dosage: 5 MG/KG WEEK 0-2-6. REAZIONE ALLA QUARTA INFUSIONE PROGRAMMATA A 6 SETTIMANE DALLA PRECEDENTE
     Route: 042
     Dates: start: 20240612, end: 20240906

REACTIONS (2)
  - Face oedema [Recovered/Resolved]
  - Dyspnoea [Recovered/Resolved]

NARRATIVE: CASE EVENT DATE: 20240906
